FAERS Safety Report 4300219-4 (Version None)
Quarter: 2004Q1

REPORT INFORMATION
  Report Type: 
  Country: None (occurrence: None)
  Receive Date: 20040218
  Receipt Date: 20040218
  Transmission Date: 20041129
  Serious: Yes (Hospitalization)
  Sender: FDA-Public Use
  Company Number: None

PATIENT
  Age: 60 Year
  Sex: Male

DRUGS (3)
  1. TEMOZOLOMIDE [Suspect]
     Indication: MIXED OLIGO-ASTROCYTOMA
     Dosage: 315 MG/DAY PO
     Route: 048
     Dates: start: 20040109, end: 20040115
  2. TEMOZOLOMIDE [Suspect]
     Indication: MIXED OLIGO-ASTROCYTOMA
     Dosage: 315 MG/DAY PO
     Route: 048
     Dates: start: 20040122, end: 20040129
  3. TEMOZOLOMIDE [Suspect]
     Indication: MIXED OLIGO-ASTROCYTOMA
     Dosage: 315 MG/DAY PO
     Route: 048
     Dates: start: 20040206, end: 20040212

REACTIONS (3)
  - HEADACHE [None]
  - INFECTION [None]
  - PAIN [None]
